FAERS Safety Report 10196358 (Version 1)
Quarter: 2014Q2

REPORT INFORMATION
  Report Type: Spontaneous
  Country: US (occurrence: US)
  Receive Date: 20140527
  Receipt Date: 20140527
  Transmission Date: 20141212
  Serious: Yes (Other)
  Sender: FDA-Public Use
  Company Number: US-JNJFOC-20140508602

PATIENT
  Age: 57 Year
  Sex: Female

DRUGS (3)
  1. DOXORUBICIN [Suspect]
     Indication: METASTATIC NEOPLASM
     Route: 042
  2. DEXTROSE 5 % [Concomitant]
     Route: 065
  3. UNKNOWN MEDICATION [Concomitant]
     Indication: PREMEDICATION
     Route: 065

REACTIONS (1)
  - Toxic encephalopathy [Recovered/Resolved]
